FAERS Safety Report 4962880-0 (Version None)
Quarter: 2006Q2

REPORT INFORMATION
  Report Type: 
  Country: None (occurrence: None)
  Receive Date: 20060403
  Receipt Date: 20060403
  Transmission Date: 20061013
  Serious: Yes (Other)
  Sender: FDA-Public Use
  Company Number: None

PATIENT
  Age: 59 Year
  Sex: Female
  Weight: 90.7194 kg

DRUGS (3)
  1. CIPROFLOXACIN [Suspect]
     Indication: INFECTION
     Dosage: 500 MG.    2 TIMES DAILY   PO
     Route: 048
     Dates: start: 20060224, end: 20060228
  2. METRONIDAZOLE [Suspect]
     Dosage: 500 MG     3 TIMES DAILY   PO
     Route: 048
     Dates: start: 20060303, end: 20060312
  3. CIPRO [Concomitant]

REACTIONS (7)
  - ARTHRALGIA [None]
  - OEDEMA PERIPHERAL [None]
  - PAIN [None]
  - PARAESTHESIA [None]
  - SHOULDER PAIN [None]
  - TENDERNESS [None]
  - TENDON DISORDER [None]
